FAERS Safety Report 4908033-3 (Version None)
Quarter: 2006Q1

REPORT INFORMATION
  Report Type: 
  Country: None (occurrence: None)
  Receive Date: 20060210
  Receipt Date: 20060208
  Transmission Date: 20060701
  Serious: Yes (Other)
  Sender: FDA-Public Use
  Company Number: 200610546EU

PATIENT
  Age: 46 Year
  Sex: Female

DRUGS (1)
  1. NICORETTE [Suspect]
     Indication: FEELING OF RELAXATION
     Route: 002
     Dates: start: 20050501, end: 20060118

REACTIONS (4)
  - CRYING [None]
  - DEPENDENCE [None]
  - DEPRESSED MOOD [None]
  - WEIGHT INCREASED [None]
